FAERS Safety Report 12799136 (Version 3)
Quarter: 2017Q1

REPORT INFORMATION
  Report Type: Spontaneous
  Country: JP (occurrence: JP)
  Receive Date: 20160930
  Receipt Date: 20170314
  Transmission Date: 20170428
  Serious: Yes (Hospitalization, Other)
  Sender: FDA-Public Use
  Company Number: JP-009507513-1607JPN004266

PATIENT
  Age: 68 Year
  Sex: Male
  Weight: 68 kg

DRUGS (4)
  1. CORTRIL [Suspect]
     Active Substance: HYDROCORTISONE
     Dosage: UNK
     Route: 065
  2. FAMOTIDINE. [Suspect]
     Active Substance: FAMOTIDINE
     Dosage: UNK
     Route: 065
  3. TEMODAL [Suspect]
     Active Substance: TEMOZOLOMIDE
     Dosage: 260 MG, UNK
     Dates: start: 20160706, end: 20160707
  4. TEMODAL [Suspect]
     Active Substance: TEMOZOLOMIDE
     Indication: NEOPLASM PROGRESSION
     Dosage: 120 MG, UNK
     Route: 048
     Dates: start: 20160408, end: 20160608

REACTIONS (5)
  - Vomiting [Recovering/Resolving]
  - Eczema [Recovered/Resolved]
  - Nausea [Recovering/Resolving]
  - Rash [Recovering/Resolving]
  - Pancytopenia [Recovered/Resolved]

NARRATIVE: CASE EVENT DATE: 201604
